FAERS Safety Report 6044549-7 (Version None)
Quarter: 2009Q1

REPORT INFORMATION
  Report Type: 
  Country: None (occurrence: None)
  Receive Date: 20090120
  Receipt Date: 20090108
  Transmission Date: 20090719
  Serious: Yes (Death)
  Sender: FDA-Public Use
  Company Number: JP-SANOFI-SYNTHELABO-A01200812895

PATIENT
  Sex: Male
  Weight: 48 kg

DRUGS (29)
  1. BROACT [Concomitant]
     Indication: PNEUMONIA
     Route: 042
     Dates: start: 20081001, end: 20081005
  2. ANTOBRON L [Concomitant]
     Indication: BRONCHITIS
     Route: 048
     Dates: start: 20080925, end: 20081005
  3. KEJIFEN [Concomitant]
     Indication: UPPER RESPIRATORY TRACT INFECTION
     Route: 048
     Dates: start: 20080925, end: 20080930
  4. PL [Concomitant]
     Indication: UPPER RESPIRATORY TRACT INFECTION
     Route: 048
     Dates: start: 20080925, end: 20080930
  5. MAGMITT [Concomitant]
     Indication: CONSTIPATION
     Route: 048
     Dates: start: 20080911, end: 20081004
  6. SENNOSIDE [Concomitant]
     Indication: CONSTIPATION
     Route: 048
     Dates: start: 20080911, end: 20081004
  7. DAI-KENCHU-TO [Concomitant]
     Indication: CONSTIPATION
     Route: 048
     Dates: start: 20080911, end: 20081004
  8. TANNALBIN [Concomitant]
     Indication: DIARRHOEA
     Route: 048
     Dates: start: 20080626, end: 20080802
  9. BISMUTH SUBNITRATE [Concomitant]
     Indication: DIARRHOEA
     Route: 048
     Dates: start: 20080626, end: 20080802
  10. BRUFEN [Concomitant]
     Indication: FOOT FRACTURE
     Route: 048
     Dates: start: 20080605, end: 20081004
  11. TOCLASE [Concomitant]
     Indication: BRONCHITIS
     Route: 048
     Dates: start: 20080507, end: 20080803
  12. AZELASTINE HCL [Concomitant]
     Indication: BRONCHITIS
     Route: 048
     Dates: start: 20080507, end: 20080803
  13. TAKEPRON [Concomitant]
     Indication: REFLUX OESOPHAGITIS
     Route: 048
     Dates: start: 20080303, end: 20080316
  14. GASMOTIN [Concomitant]
     Indication: GASTRITIS
     Route: 048
     Dates: start: 20080124, end: 20080316
  15. ACINON [Concomitant]
     Indication: GASTRITIS
     Route: 048
     Dates: start: 20080124, end: 20080131
  16. PROMAC [Concomitant]
     Indication: HYPOAESTHESIA
     Route: 048
     Dates: start: 20071130, end: 20071209
  17. MUCOSTA [Concomitant]
     Indication: GASTRITIS
     Route: 048
     Dates: start: 20071130, end: 20071207
  18. CARNACULIN [Concomitant]
     Indication: CORNEAL EROSION
     Route: 048
     Dates: start: 20070907, end: 20071228
  19. ADONA [Concomitant]
     Indication: CORNEAL EROSION
     Route: 048
     Dates: start: 20070907, end: 20071228
  20. MYSLEE [Concomitant]
     Indication: INSOMNIA
     Route: 048
     Dates: end: 20081004
  21. BIOFERMIN [Concomitant]
     Indication: ENTEROCOLITIS
     Route: 048
     Dates: end: 20081004
  22. CARDENALIN [Concomitant]
     Indication: HYPERTENSION
     Route: 048
     Dates: end: 20081004
  23. ADALAT CC [Concomitant]
     Indication: HYPERTENSION
     Route: 048
     Dates: end: 20081004
  24. SEROTONE [Concomitant]
     Indication: PREMEDICATION
     Route: 042
     Dates: start: 20071101, end: 20080819
  25. DEXART [Concomitant]
     Indication: PREMEDICATION
     Route: 042
     Dates: start: 20071101, end: 20080819
  26. ELPLAT [Suspect]
     Indication: RECTAL CANCER
     Route: 041
     Dates: start: 20080819, end: 20080819
  27. LEUCOVORIN CALCIUM [Concomitant]
     Indication: RECTAL CANCER
     Route: 041
     Dates: start: 20080819, end: 20080820
  28. FLUOROURACIL [Suspect]
     Dosage: 500MG/BODY (362.3MG/M2) IN BOLUS THEN 750MG/BODY (543.5MG/M2)
     Route: 040
     Dates: start: 20080819, end: 20080819
  29. FLUOROURACIL [Suspect]
     Route: 041
     Dates: start: 20080819, end: 20080820

REACTIONS (1)
  - INTERSTITIAL LUNG DISEASE [None]
